FAERS Safety Report 4598344-6 (Version None)
Quarter: 2005Q1

REPORT INFORMATION
  Report Type: 
  Country: None (occurrence: None)
  Receive Date: 20050301
  Receipt Date: 20050301
  Transmission Date: 20050727
  Serious: Yes (Hospitalization)
  Sender: FDA-Public Use
  Company Number: None

PATIENT
  Age: 13 Year
  Sex: Female
  Weight: 42.2 kg

DRUGS (1)
  1. NORDITROPIN [Suspect]
     Indication: TURNER'S SYNDROME
     Dosage: 2.1MG QD SUBQ
     Route: 003
     Dates: start: 20020201, end: 20050222

REACTIONS (2)
  - THROMBOCYTOPENIA [None]
  - WHITE BLOOD CELL COUNT DECREASED [None]
